FAERS Safety Report 4744760-9 (Version None)
Quarter: 2005Q3

REPORT INFORMATION
  Report Type: 
  Country: None (occurrence: None)
  Receive Date: 20050815
  Receipt Date: 20050608
  Transmission Date: 20060218
  Serious: Yes (Death, Hospitalization)
  Sender: FDA-Public Use
  Company Number: 200511142DE

PATIENT
  Age: 45 Year
  Sex: Female

DRUGS (5)
  1. DOCETAXEL [Suspect]
     Indication: BREAST CANCER
     Route: 042
     Dates: start: 20050513, end: 20050513
  2. DOXORUBICIN HCL [Suspect]
     Indication: BREAST CANCER
     Dates: start: 20050513, end: 20050513
  3. CYCLOPHOSPHAMIDE [Suspect]
     Indication: BREAST CANCER
     Dates: start: 20050513, end: 20050513
  4. GEMCITABIN [Concomitant]
     Indication: BREAST CANCER METASTATIC
     Dates: start: 20050601
  5. CAPECITABIN [Concomitant]
     Dates: start: 20050601

REACTIONS (10)
  - ANOREXIA [None]
  - ASTHENIA [None]
  - BREAST CANCER METASTATIC [None]
  - COMA HEPATIC [None]
  - DEPRESSION [None]
  - HEPATOMEGALY [None]
  - METASTASES TO LIVER [None]
  - NAUSEA [None]
  - NEOPLASM PROGRESSION [None]
  - PYREXIA [None]
